FAERS Safety Report 7055464-4 (Version None)
Quarter: 2010Q4

REPORT INFORMATION
  Report Type: 
  Country: None (occurrence: None)
  Receive Date: 20101021
  Receipt Date: 20101011
  Transmission Date: 20110411
  Serious: No
  Sender: FDA-Public Use
  Company Number: US-ABBOTT-10P-163-0674963-00

PATIENT
  Sex: Male
  Weight: 81.72 kg

DRUGS (9)
  1. SIMCOR [Suspect]
     Indication: BLOOD CHOLESTEROL INCREASED
     Dates: start: 20100501, end: 20100914
  2. SIMCOR [Suspect]
     Dates: start: 20100923
  3. ATENOLOL [Concomitant]
     Indication: HYPERTENSION
  4. HYDROCHLOROTHIAZIDE [Concomitant]
     Indication: HYPERTENSION
  5. PRILOSEC [Concomitant]
     Indication: GASTROOESOPHAGEAL REFLUX DISEASE
  6. VICODIN [Concomitant]
     Indication: ARTHRITIS
     Dates: start: 20100801
  7. UNKNOWN PAIN MEDICATION [Concomitant]
     Indication: ARTHRITIS
     Dates: start: 20100801
  8. VALIUM [Concomitant]
     Indication: BACK PAIN
     Dates: start: 20100921
  9. HYDROCODONE BITARTRATE [Concomitant]
     Indication: BACK PAIN
     Dates: start: 20100921

REACTIONS (6)
  - BLOOD GLUCOSE INCREASED [None]
  - CONSTIPATION [None]
  - FEELING HOT [None]
  - FLUSHING [None]
  - HYPERHIDROSIS [None]
  - PRURITUS [None]
